FAERS Safety Report 4704544-4 (Version None)
Quarter: 2005Q2

REPORT INFORMATION
  Report Type: 
  Country: None (occurrence: None)
  Receive Date: 20050629
  Receipt Date: 20050616
  Transmission Date: 20051028
  Serious: Yes (Hospitalization)
  Sender: FDA-Public Use
  Company Number: SUS1-2005-00508

PATIENT
  Age: 79 Year
  Sex: Female

DRUGS (2)
  1. PENTASA [Suspect]
     Indication: CROHN'S DISEASE
     Dosage: 1.5 MG DAILY ORAL
     Route: 048
     Dates: start: 20050221, end: 20050223
  2. TICLOPIDINE HCL [Suspect]
     Dosage: 0.1 MG DAILY ORAL
     Route: 048
     Dates: start: 20050217, end: 20050217

REACTIONS (2)
  - JAUNDICE [None]
  - PLATELET COUNT DECREASED [None]
